FAERS Safety Report 20654824 (Version 1)
Quarter: 2022Q1

REPORT INFORMATION
  Report Type: Spontaneous
  Country: US (occurrence: None)
  Receive Date: 20220330
  Receipt Date: 20220330
  Transmission Date: 20220423
  Serious: No
  Sender: FDA-Public Use
  Company Number: None

PATIENT
  Age: 52 Year
  Sex: Female

DRUGS (1)
  1. TAXOL [Suspect]
     Active Substance: PACLITAXEL

REACTIONS (5)
  - Infusion related reaction [None]
  - Flushing [None]
  - Sensory disturbance [None]
  - Lip disorder [None]
  - Lip swelling [None]

NARRATIVE: CASE EVENT DATE: 20220322
